FAERS Safety Report 6616480-7 (Version None)
Quarter: 2010Q1

REPORT INFORMATION
  Report Type: 
  Country: None (occurrence: None)
  Receive Date: 20100305
  Receipt Date: 20100222
  Transmission Date: 20100710
  Serious: Yes (Death, Life-Threatening)
  Sender: FDA-Public Use
  Company Number: FR-PFIZER INC-2010022431

PATIENT
  Age: 66 Year
  Sex: Female

DRUGS (6)
  1. XANAX [Suspect]
     Dosage: 0.25 MG, ONCE PER DAY
     Route: 048
  2. TEMOZOLOMIDE [Suspect]
     Indication: GLIOBLASTOMA
     Dosage: 250 MG, ONCE PER DAY
     Route: 048
     Dates: start: 20090105, end: 20090204
  3. CORTANCYL [Suspect]
     Dosage: 40 MG, 1X/DAY
     Route: 048
  4. LAMICTAL [Suspect]
     Dosage: 50 MG, 2X/DAY
     Route: 048
  5. BACTRIM DS [Suspect]
     Indication: PROPHYLAXIS
     Dosage: 1 DF, 3X/DAY
     Route: 048
  6. EUPANTOL [Suspect]
     Route: 048

REACTIONS (1)
  - BONE MARROW FAILURE [None]
